FAERS Safety Report 24284960 (Version 1)
Quarter: 2024Q3

REPORT INFORMATION
  Report Type: Spontaneous
  Country: FR (occurrence: FR)
  Receive Date: 20240905
  Receipt Date: 20240905
  Transmission Date: 20241017
  Serious: Yes (Hospitalization)
  Sender: SANDOZ
  Company Number: FR-AFSSAPS-AVCN2024000634

PATIENT
  Age: 58 Year
  Sex: Female

DRUGS (5)
  1. ANORO ELLIPTA [Suspect]
     Active Substance: UMECLIDINIUM BROMIDE\VILANTEROL TRIFENATATE
     Indication: Product used for unknown indication
     Dosage: 1 DOSE ONCE A DAY
     Route: 065
  2. BROMAZEPAM [Suspect]
     Active Substance: BROMAZEPAM
     Indication: Product used for unknown indication
     Dosage: 0.25 TABLET MORNING AND NOON, 0.5 TABLET EVENING
     Route: 048
  3. CANNABIS SATIVA SUBSP. INDICA TOP [Suspect]
     Active Substance: CANNABIS SATIVA SUBSP. INDICA TOP
     Indication: Product used for unknown indication
     Dosage: UNK
     Route: 055
     Dates: start: 202302
  4. NEURONTIN [Suspect]
     Active Substance: GABAPENTIN
     Indication: Product used for unknown indication
     Dosage: 1 TABLET MORNING, NOON AND EVENING
     Route: 065
  5. ACETAMINOPHEN [Suspect]
     Active Substance: ACETAMINOPHEN
     Indication: Product used for unknown indication
     Dosage: 1 TABLET EVERY 6 HOURS IF PAIN OR FEVER
     Route: 065

REACTIONS (11)
  - Pneumonia aspiration [Unknown]
  - Hyperleukocytosis [Unknown]
  - Generalised tonic-clonic seizure [Recovered/Resolved]
  - Pyelonephritis acute [Unknown]
  - Osteoporotic fracture [Unknown]
  - Hypercreatininaemia [Unknown]
  - Blood alkaline phosphatase increased [Recovering/Resolving]
  - Transaminases increased [Recovering/Resolving]
  - Mouth haemorrhage [Unknown]
  - Confusional state [Recovering/Resolving]
  - Drug abuse [Not Recovered/Not Resolved]

NARRATIVE: CASE EVENT DATE: 20230301
